FAERS Safety Report 9750942 (Version 1)
Quarter: 2013Q4

REPORT INFORMATION
  Report Type: Spontaneous
  Country: US (occurrence: US)
  Receive Date: 20131212
  Receipt Date: 20131212
  Transmission Date: 20140711
  Serious: Yes (Other)
  Sender: FDA-Public Use
  Company Number: US-TEVA-399390USA

PATIENT
  Age: 39 Year
  Sex: Female
  Weight: 83.99 kg

DRUGS (4)
  1. PARAGARD 380A [Suspect]
     Indication: CONTRACEPTION
     Route: 015
     Dates: start: 20130305, end: 20130416
  2. PARAGARD 380A [Suspect]
     Route: 015
     Dates: start: 20130416
  3. CURTATE [Concomitant]
     Indication: DYSPEPSIA
  4. TOPROL [Concomitant]
     Indication: HYPERTENSION

REACTIONS (1)
  - Device dislocation [Recovered/Resolved]
